FAERS Safety Report 7023927-3 (Version None)
Quarter: 2010Q3

REPORT INFORMATION
  Report Type: 
  Country: None (occurrence: None)
  Receive Date: 20100916
  Receipt Date: 20091028
  Transmission Date: 20110219
  Serious: Yes (Hospitalization)
  Sender: FDA-Public Use
  Company Number: 109474 (0)

PATIENT
  Age: 46 Year
  Sex: Male

DRUGS (1)
  1. INNOHEP [Suspect]
     Indication: PULMONARY EMBOLISM
     Dosage: 175 IU/KG (175 IU/KG,1 IN 1 D) , SUBCUTANEOUS
     Route: 058
     Dates: start: 20090616, end: 20090901

REACTIONS (4)
  - ANAEMIA [None]
  - BONE MARROW FAILURE [None]
  - HAEMATURIA [None]
  - THROMBOCYTOPENIA [None]
